FAERS Safety Report 4593815-0 (Version None)
Quarter: 2005Q1

REPORT INFORMATION
  Report Type: 
  Country: None (occurrence: None)
  Receive Date: 20050301
  Receipt Date: 20050217
  Transmission Date: 20050727
  Serious: Yes (Hospitalization)
  Sender: FDA-Public Use
  Company Number: US-AMGEN-US115793

PATIENT
  Sex: Male

DRUGS (3)
  1. ETANERCEPT [Suspect]
     Indication: JUVENILE CHRONIC MYELOMONOCYTIC LEUKAEMIA
     Route: 058
     Dates: start: 20050101
  2. PENICILLIN VK [Concomitant]
  3. HYDROXYUREA [Concomitant]

REACTIONS (1)
  - PNEUMONIA [None]
